FAERS Safety Report 15609373 (Version 5)
Quarter: 2019Q3

REPORT INFORMATION
  Report Type: Spontaneous
  Country: JP (occurrence: JP)
  Receive Date: 20181112
  Receipt Date: 20190913
  Transmission Date: 20191004
  Serious: Yes (Death, Hospitalization)
  Sender: FDA-Public Use
  Company Number: JP-ASTRAZENECA-2018SF46981

PATIENT
  Age: 15788 Day
  Sex: Female
  Weight: 44 kg

DRUGS (17)
  1. PREDNISOLONE. [Suspect]
     Active Substance: PREDNISOLONE
     Indication: INTERSTITIAL LUNG DISEASE
     Route: 048
     Dates: start: 20181118, end: 20181124
  2. CYCLOPHOSPHAMIDE HYDRATE [Suspect]
     Active Substance: CYCLOPHOSPHAMIDE
     Indication: BREAST CANCER FEMALE
     Route: 065
     Dates: start: 201311
  3. PREDNISOLONE. [Suspect]
     Active Substance: PREDNISOLONE
     Indication: INTERSTITIAL LUNG DISEASE
     Route: 048
     Dates: start: 20181111, end: 20181117
  4. PREDNISOLONE. [Suspect]
     Active Substance: PREDNISOLONE
     Indication: INTERSTITIAL LUNG DISEASE
     Route: 048
     Dates: start: 20181125, end: 20181201
  5. FLUOROURACIL. [Suspect]
     Active Substance: FLUOROURACIL
     Indication: BREAST CANCER FEMALE
     Route: 065
     Dates: start: 201311
  6. FLUOROURACIL. [Suspect]
     Active Substance: FLUOROURACIL
     Indication: BREAST CANCER FEMALE
     Route: 065
     Dates: start: 201809
  7. EPIRUBICIN HYDROCHLORIDE. [Suspect]
     Active Substance: EPIRUBICIN HYDROCHLORIDE
     Indication: BREAST CANCER FEMALE
     Route: 065
     Dates: start: 201311
  8. PREDNISOLONE. [Suspect]
     Active Substance: PREDNISOLONE
     Indication: INTERSTITIAL LUNG DISEASE
     Route: 048
     Dates: start: 20181104, end: 20181110
  9. LYNPARZA [Suspect]
     Active Substance: OLAPARIB
     Indication: BREAST CANCER
     Route: 048
     Dates: start: 20181024, end: 20181031
  10. PREDNISOLONE. [Suspect]
     Active Substance: PREDNISOLONE
     Indication: INTERSTITIAL LUNG DISEASE
     Route: 048
     Dates: start: 20181202, end: 20181211
  11. PREDNISOLONE. [Suspect]
     Active Substance: PREDNISOLONE
     Indication: INTERSTITIAL LUNG DISEASE
     Route: 048
     Dates: start: 20181212, end: 20181226
  12. EPIRUBICIN HYDROCHLORIDE. [Suspect]
     Active Substance: EPIRUBICIN HYDROCHLORIDE
     Indication: BREAST CANCER FEMALE
     Route: 065
     Dates: start: 201809
  13. LYNPARZA [Suspect]
     Active Substance: OLAPARIB
     Indication: BREAST CANCER
     Route: 048
     Dates: start: 20181115, end: 20181122
  14. PREDNISOLONE. [Suspect]
     Active Substance: PREDNISOLONE
     Indication: INTERSTITIAL LUNG DISEASE
     Route: 048
     Dates: start: 20181229
  15. CYCLOPHOSPHAMIDE HYDRATE [Suspect]
     Active Substance: CYCLOPHOSPHAMIDE
     Indication: BREAST CANCER FEMALE
     Route: 065
     Dates: start: 201809
  16. SOLU-MEDROL [Concomitant]
     Active Substance: METHYLPREDNISOLONE SODIUM SUCCINATE
     Route: 041
     Dates: start: 20181101, end: 20181103
  17. LYNPARZA [Suspect]
     Active Substance: OLAPARIB
     Indication: BREAST CANCER
     Route: 048
     Dates: start: 20181123, end: 20181227

REACTIONS (4)
  - Interstitial lung disease [Recovered/Resolved]
  - Pneumocystis jirovecii pneumonia [Recovering/Resolving]
  - Malignant neoplasm progression [Fatal]
  - Lymphangiosis carcinomatosa [Fatal]

NARRATIVE: CASE EVENT DATE: 20181031
